FAERS Safety Report 18581182 (Version 3)
Quarter: 2021Q1

REPORT INFORMATION
  Report Type: Report from Study
  Country: US (occurrence: US)
  Receive Date: 20201204
  Receipt Date: 20210315
  Transmission Date: 20210419
  Serious: No
  Sender: FDA-Public Use
  Company Number: NVSC2020US322108

PATIENT
  Age: 40 Year
  Sex: Male

DRUGS (1)
  1. COSENTYX [Suspect]
     Active Substance: SECUKINUMAB
     Indication: PRODUCT USED FOR UNKNOWN INDICATION
     Dosage: UNK
     Route: 065

REACTIONS (6)
  - Pyrexia [Unknown]
  - Headache [Unknown]
  - Chills [Unknown]
  - Hyperhidrosis [Unknown]
  - Illness [Unknown]
  - Psoriasis [Unknown]

NARRATIVE: CASE EVENT DATE: 202002
